FAERS Safety Report 5496081-7 (Version None)
Quarter: 2007Q4

REPORT INFORMATION
  Report Type: 
  Country: None (occurrence: None)
  Receive Date: 20071025
  Receipt Date: 20070122
  Transmission Date: 20080405
  Serious: No
  Sender: FDA-Public Use
  Company Number: A0636528A

PATIENT
  Age: 78 Year
  Sex: Female

DRUGS (8)
  1. ADVAIR DISKUS 100/50 [Suspect]
     Indication: ASTHMA
     Dosage: 1PUFF TWICE PER DAY
     Route: 055
     Dates: start: 20061201, end: 20070112
  2. ALBUTEROL [Concomitant]
  3. REGLAN [Concomitant]
  4. PRILOSEC [Concomitant]
  5. NITROQUICK [Concomitant]
  6. UNKNOWN MEDICATION [Concomitant]
  7. IMDUR [Concomitant]
  8. ASPIRIN [Concomitant]

REACTIONS (1)
  - DRUG INEFFECTIVE [None]
